FAERS Safety Report 15754278 (Version 2)
Quarter: 2019Q1

REPORT INFORMATION
  Report Type: Spontaneous
  Country: US (occurrence: US)
  Receive Date: 20181223
  Receipt Date: 20190111
  Transmission Date: 20190417
  Serious: No
  Sender: FDA-Public Use
  Company Number: US-B.I. PHARMACEUTICALS,INC./RIDGEFIELD-2018-BI-061096

PATIENT
  Age: 73 Year
  Sex: Female

DRUGS (1)
  1. SPIRIVA [Suspect]
     Active Substance: TIOTROPIUM BROMIDE MONOHYDRATE
     Indication: DYSPNOEA
     Dosage: 1 CAPSULE DAILY;  FORM STRENGTH: 18 MCG; FORMULATION: CAPSULE? NO ?DOSE NOT CHANGED
     Route: 055
     Dates: start: 2008

REACTIONS (2)
  - Extra dose administered [Recovered/Resolved]
  - Product quality issue [Unknown]

NARRATIVE: CASE EVENT DATE: 201812
